FAERS Safety Report 4667260-3 (Version None)
Quarter: 2005Q2

REPORT INFORMATION
  Report Type: 
  Country: None (occurrence: None)
  Receive Date: 20050520
  Receipt Date: 20040810
  Transmission Date: 20051028
  Serious: Yes (Other)
  Sender: FDA-Public Use
  Company Number: PHEH2004US08652

PATIENT
  Age: 49 Year
  Sex: Female

DRUGS (8)
  1. ZOMETA [Suspect]
     Indication: BREAST CANCER METASTATIC
     Dosage: 4 MG MONTHLY
     Route: 042
     Dates: start: 20020807
  2. LEXAPRO [Concomitant]
     Indication: DEPRESSION
     Route: 048
  3. PERCOCET [Concomitant]
     Indication: PAIN
     Dosage: 1 DF, Q4H
     Route: 048
  4. TRAMADOL [Concomitant]
     Indication: PAIN
     Dosage: 1 DF, UNK
     Route: 048
  5. ACETAMINOPHEN [Concomitant]
     Indication: PAIN
     Dosage: WITH TRAMADOL
     Route: 048
  6. CORTISPORIN [Concomitant]
     Dosage: 3 DRP, QID
     Dates: start: 20040622, end: 20040629
  7. TAXOTERE [Concomitant]
     Indication: BREAST CANCER METASTATIC
     Dosage: UNK, UNK
     Dates: start: 20021106
  8. DECADRON [Concomitant]

REACTIONS (7)
  - DENTAL CARIES [None]
  - JAW DISORDER [None]
  - OSTEONECROSIS [None]
  - PERIODONTAL OPERATION [None]
  - RADIOTHERAPY [None]
  - TOOTH ABSCESS [None]
  - TOOTH EXTRACTION [None]
